FAERS Safety Report 7717593-9 (Version None)
Quarter: 2011Q3

REPORT INFORMATION
  Report Type: 
  Country: None (occurrence: None)
  Receive Date: 20110824
  Receipt Date: 20110815
  Transmission Date: 20111222
  Serious: Yes (Other)
  Sender: FDA-Public Use
  Company Number: AUR-APL-2011-04673

PATIENT
  Age: 47 Year
  Sex: Female

DRUGS (1)
  1. ALENDRONATE SODIUM [Suspect]
     Indication: PRODUCT USED FOR UNKNOWN INDICATION
     Dosage: 70 MG, 1 WK, ORAL
     Route: 048
     Dates: start: 20110701, end: 20110801

REACTIONS (2)
  - CHEMICAL INJURY [None]
  - TONGUE DISORDER [None]
